FAERS Safety Report 7669190-1 (Version None)
Quarter: 2011Q3

REPORT INFORMATION
  Report Type: 
  Country: None (occurrence: None)
  Receive Date: 20110808
  Receipt Date: 20110728
  Transmission Date: 20111222
  Serious: Yes (Other)
  Sender: FDA-Public Use
  Company Number: PHFR2011GB01813

PATIENT
  Sex: Female
  Weight: 70 kg

DRUGS (17)
  1. FUROSEMIDE [Concomitant]
     Dosage: 1 TABLET MANE
     Dates: start: 20110720
  2. ACETAMINOPHEN AND CODEINE PHOSPHATE [Concomitant]
     Dosage: UNK
     Dates: start: 20110720
  3. AIROMIR [Concomitant]
     Dosage: 5 MG, UNK
     Dates: start: 20100309
  4. NITROGLYCERIN [Concomitant]
     Dosage: 1 PUFF PRN
     Dates: start: 20110222
  5. NOVOMIX [Concomitant]
     Dosage: UNK
     Dates: start: 20110720
  6. PRAVASTATIN [Concomitant]
     Dosage: 40 MG NOCTE
  7. SPIRONOLACTONE [Concomitant]
     Dosage: 25 MG MANE
     Dates: start: 20110720
  8. VALSARTAN [Concomitant]
     Dosage: 40 MG, UNK
  9. ADCAL-D3 [Concomitant]
     Dosage: 1 TABLET DAILY
     Dates: start: 20110621
  10. BISOPROLOL FUMARATE [Concomitant]
     Dosage: UNK MG, UNK
     Dates: start: 20110720
  11. DIGOXIN [Concomitant]
     Dosage: 125MCG DAILY
     Dates: start: 20110720
  12. AIROMIR [Concomitant]
     Dosage: 3 MG, UNK
     Dates: start: 20100309
  13. WARFARIN SODIUM [Concomitant]
     Dosage: UNK
     Dates: start: 20100309
  14. LACTULOSE [Concomitant]
     Dosage: 15 ML, BID
     Dates: start: 20101028
  15. ALENDRONIC ACID [Suspect]
     Dosage: 70 MG, UNK
  16. AIROMIR [Concomitant]
     Dosage: 1 MG, UNK
     Dates: start: 20110720
  17. FEMARA [Suspect]
     Indication: BREAST CANCER
     Dosage: 2.5 MG, UNK
     Route: 048
     Dates: start: 20100416

REACTIONS (12)
  - DIABETES MELLITUS [None]
  - MUSCULOSKELETAL PAIN [None]
  - AMNESIA [None]
  - OEDEMA PERIPHERAL [None]
  - CARDIAC FAILURE [None]
  - ARTHRALGIA [None]
  - BLEPHARITIS [None]
  - NIGHT SWEATS [None]
  - IRRITABILITY [None]
  - MACULAR DEGENERATION [None]
  - LIVER DISORDER [None]
  - RENAL DISORDER [None]
